FAERS Safety Report 12170471 (Version 1)
Quarter: 2016Q1

REPORT INFORMATION
  Report Type: Spontaneous
  Country: US (occurrence: None)
  Receive Date: 20160310
  Receipt Date: 20160310
  Transmission Date: 20160526
  Serious: Yes (Hospitalization)
  Sender: FDA-Public Use
  Company Number: None

PATIENT

DRUGS (2)
  1. RABBIT ANTITHYMOCYTE IMMUNE GLOB 25 MG GENZYME [Suspect]
     Active Substance: LAPINE T-LYMPHOCYTE IMMUNE GLOBULIN
     Route: 042
     Dates: start: 20160305
  2. RABBIT ANTITHYMOCYTE IMMUNE GLOB 25 MG VIALS GENZYME [Suspect]
     Active Substance: LAPINE T-LYMPHOCYTE IMMUNE GLOBULIN
     Indication: RENAL TRANSPLANT
     Route: 042
     Dates: start: 20160308

REACTIONS (3)
  - Chest pain [None]
  - Dyspnoea [None]
  - Wheezing [None]

NARRATIVE: CASE EVENT DATE: 20160308
